FAERS Safety Report 5748840-0 (Version None)
Quarter: 2008Q2

REPORT INFORMATION
  Report Type: 
  Country: None (occurrence: None)
  Receive Date: 20080522
  Receipt Date: 20080506
  Transmission Date: 20081010
  Serious: Yes (Other)
  Sender: FDA-Public Use
  Company Number: 1-16123919/MED-08094

PATIENT
  Sex: Male

DRUGS (5)
  1. BACTRIM [Suspect]
  2. MYCOPHENOLIC ACID [Suspect]
  3. LOW DOSE PREDNISONE [Concomitant]
  4. VALGANCICLOVIR HCL [Concomitant]
  5. TAMSULOSIN HCL [Concomitant]

REACTIONS (1)
  - APLASIA PURE RED CELL [None]
